FAERS Safety Report 5658088-6 (Version None)
Quarter: 2008Q1

REPORT INFORMATION
  Report Type: 
  Country: None (occurrence: None)
  Receive Date: 20080310
  Receipt Date: 20070227
  Transmission Date: 20080703
  Serious: No
  Sender: FDA-Public Use
  Company Number: US-BAYER-200615035BCC

PATIENT
  Age: 73 Year
  Sex: Female
  Weight: 73 kg

DRUGS (8)
  1. ALEVE [Suspect]
     Indication: ARTHRALGIA
     Dosage: TOTAL DAILY DOSE: 440 MG  UNIT DOSE: 220 MG
     Route: 048
     Dates: start: 20061201
  2. ECOTRIN [Concomitant]
     Route: 048
  3. PLENDIL [Concomitant]
  4. LIPITOR [Concomitant]
  5. TENORMIN [Concomitant]
  6. DETROL LA [Concomitant]
  7. SYNTHROID [Concomitant]
  8. ACIPHEX [Concomitant]

REACTIONS (2)
  - JOINT SWELLING [None]
  - OEDEMA PERIPHERAL [None]
